FAERS Safety Report 23289348 (Version 1)
Quarter: 2023Q4

REPORT INFORMATION
  Report Type: Spontaneous
  Country: US (occurrence: None)
  Receive Date: 20231211
  Receipt Date: 20231211
  Transmission Date: 20240109
  Serious: Yes (Hospitalization, Other)
  Sender: FDA-Public Use
  Company Number: None

PATIENT
  Age: 48 Year
  Sex: Female
  Weight: 80.1 kg

DRUGS (2)
  1. HALDOL DECANOATE [Suspect]
     Active Substance: HALOPERIDOL DECANOATE
     Indication: Schizoaffective disorder
     Dosage: 200 INJECTION(S)   SUBCUTANEOUS?
     Route: 058
     Dates: start: 20081228, end: 20231211
  2. HALDOL [Concomitant]
     Active Substance: HALOPERIDOL

REACTIONS (5)
  - Dizziness [None]
  - Dyspnoea [None]
  - Chest discomfort [None]
  - Arthralgia [None]
  - Myalgia [None]

NARRATIVE: CASE EVENT DATE: 20170520
